FAERS Safety Report 10921374 (Version 1)
Quarter: 2015Q1

REPORT INFORMATION
  Report Type: Spontaneous
  Country: US (occurrence: None)
  Receive Date: 20150313
  Receipt Date: 20150313
  Transmission Date: 20150721
  Serious: Yes (Death)
  Sender: FDA-Public Use
  Company Number: None

PATIENT
  Age: 48 Year
  Sex: Female
  Weight: 84.2 kg

DRUGS (21)
  1. DEXAMETHASONE. [Concomitant]
     Active Substance: DEXAMETHASONE
  2. INSULIN [Concomitant]
     Active Substance: INSULIN NOS
  3. FAMOTIDINE. [Concomitant]
     Active Substance: FAMOTIDINE
  4. VORAXAZE [Suspect]
     Active Substance: GLUCARPIDASE
     Indication: TOXICITY TO VARIOUS AGENTS
     Dosage: 4000 UNITS SINGLE DOSE INTRAVENOUS
     Route: 042
     Dates: start: 20150224, end: 20150224
  5. SIMVASTATIN. [Concomitant]
     Active Substance: SIMVASTATIN
  6. HALOPERIDOL. [Concomitant]
     Active Substance: HALOPERIDOL
  7. MORPHINE [Concomitant]
     Active Substance: MORPHINE
  8. LEVETIRACETAM. [Concomitant]
     Active Substance: LEVETIRACETAM
  9. GADOPENTETATE [Concomitant]
     Active Substance: GADOPENTETATE
  10. HYDROCHLOROTHIAZIDE AND LISINOPRIL [Concomitant]
     Active Substance: HYDROCHLOROTHIAZIDE\LISINOPRIL
  11. METFORMIN [Concomitant]
     Active Substance: METFORMIN HYDROCHLORIDE
  12. TOBRAMYCIN. [Concomitant]
     Active Substance: TOBRAMYCIN
  13. ALLOPURINOL. [Concomitant]
     Active Substance: ALLOPURINOL
  14. CEFTRIAXONE. [Concomitant]
     Active Substance: CEFTRIAXONE
  15. LORAZEPAM. [Concomitant]
     Active Substance: LORAZEPAM
  16. RASBURICASE [Concomitant]
     Active Substance: RASBURICASE
  17. SODIUM BICARBONATE. [Concomitant]
     Active Substance: SODIUM BICARBONATE
  18. METHOTREXATE [Suspect]
     Active Substance: METHOTREXATE
     Indication: NON-HODGKIN^S LYMPHOMA
     Route: 042
     Dates: start: 20150211, end: 20150211
  19. FILGRASTIM [Concomitant]
     Active Substance: FILGRASTIM
  20. ZOLPIDEM [Concomitant]
     Active Substance: ZOLPIDEM\ZOLPIDEM TARTRATE
  21. ONDANSETRON [Concomitant]
     Active Substance: ONDANSETRON

REACTIONS (7)
  - Acute kidney injury [None]
  - Pancytopenia [None]
  - Unresponsive to stimuli [None]
  - Dialysis [None]
  - Confusional state [None]
  - Agitation [None]
  - Resuscitation [None]

NARRATIVE: CASE EVENT DATE: 20150211
